FAERS Safety Report 7942517-9 (Version None)
Quarter: 2011Q4

REPORT INFORMATION
  Report Type: 
  Country: None (occurrence: None)
  Receive Date: 20111128
  Receipt Date: 20111116
  Transmission Date: 20120403
  Serious: Yes (Life-Threatening, Hospitalization)
  Sender: FDA-Public Use
  Company Number: JP-GLAXOSMITHKLINE-B0760611A

PATIENT
  Age: 20 Year
  Sex: Male

DRUGS (2)
  1. SERETIDE (50MCG/100MCG) [Suspect]
     Indication: ASTHMA
     Dosage: 200MCG PER DAY
     Route: 055
     Dates: start: 20110507, end: 20110526
  2. FLUTICASONE PROPIONATE [Suspect]
     Indication: ASTHMA
     Dosage: 200MCG PER DAY
     Route: 055
     Dates: start: 20110518, end: 20110526

REACTIONS (9)
  - PNEUMOCYSTIS JIROVECI PNEUMONIA [None]
  - HYPOXIA [None]
  - PNEUMOMEDIASTINUM [None]
  - SUBCUTANEOUS EMPHYSEMA [None]
  - PYREXIA [None]
  - DYSPNOEA [None]
  - PNEUMOTHORAX [None]
  - HIV ANTIBODY POSITIVE [None]
  - CHEST X-RAY ABNORMAL [None]
